FAERS Safety Report 6615702-6 (Version None)
Quarter: 2010Q1

REPORT INFORMATION
  Report Type: 
  Country: None (occurrence: None)
  Receive Date: 20100305
  Receipt Date: 20100223
  Transmission Date: 20100710
  Serious: Yes (Other)
  Sender: FDA-Public Use
  Company Number: JP-ROCHE-688102

PATIENT
  Sex: Male

DRUGS (3)
  1. AVASTIN [Suspect]
     Indication: RECTAL CANCER
     Route: 041
     Dates: start: 20100112
  2. XELODA [Suspect]
     Indication: RECTAL CANCER
     Dosage: DRUG: XELODA 300
     Route: 048
  3. ELPLAT [Suspect]
     Indication: RECTAL CANCER
     Route: 041

REACTIONS (1)
  - ANAPHYLACTIC SHOCK [None]
